FAERS Safety Report 12786825 (Version 1)
Quarter: 2016Q3

REPORT INFORMATION
  Report Type: Spontaneous
  Country: US (occurrence: US)
  Receive Date: 20160927
  Receipt Date: 20160927
  Transmission Date: 20161109
  Serious: Yes (Hospitalization)
  Sender: FDA-Public Use
  Company Number: None

PATIENT
  Age: 80 Year
  Sex: Female
  Weight: 61 kg

DRUGS (2)
  1. NIVOLUMAB [Concomitant]
     Active Substance: NIVOLUMAB
  2. MEMANTINE HYDROCHLORIDE. [Suspect]
     Active Substance: MEMANTINE HYDROCHLORIDE
     Dates: end: 20160416

REACTIONS (13)
  - Malaise [None]
  - Cardiac murmur [None]
  - Leukocytosis [None]
  - Metastatic malignant melanoma [None]
  - Dementia [None]
  - Anaemia [None]
  - Muscular weakness [None]
  - Fatigue [None]
  - Hypothyroidism [None]
  - Peripheral swelling [None]
  - Asthenia [None]
  - Hypertension [None]
  - Osteopenia [None]

NARRATIVE: CASE EVENT DATE: 20160416
